FAERS Safety Report 8832721 (Version 1)
Quarter: 2012Q4

REPORT INFORMATION
  Report Type: 
  Country: US (occurrence: US)
  Receive Date: 20121010
  Receipt Date: 20121010
  Transmission Date: 20130627
  Serious: Yes (Hospitalization)
  Sender: FDA-Public Use
  Company Number: US-BAYER-2012-103476

PATIENT
  Age: 50 Year
  Sex: Female
  Weight: 99.77 kg

DRUGS (2)
  1. GIANVI [Suspect]
  2. YAZ [Suspect]
     Indication: CONTRACEPTION

REACTIONS (1)
  - Deep vein thrombosis [Recovered/Resolved]
